FAERS Safety Report 7485039-4 (Version None)
Quarter: 2011Q2

REPORT INFORMATION
  Report Type: 
  Country: None (occurrence: None)
  Receive Date: 20110517
  Receipt Date: 20101103
  Transmission Date: 20111010
  Serious: Yes (Hospitalization)
  Sender: FDA-Public Use
  Company Number: US-BAYER-201022156NA

PATIENT
  Age: 18 Year
  Sex: Female
  Weight: 102.27 kg

DRUGS (11)
  1. YASMIN [Suspect]
     Indication: CONTRACEPTION
  2. CLOTRIMAZOLE [Concomitant]
     Indication: RASH
     Dates: start: 20071001, end: 20081001
  3. TRAZODONE HCL [Concomitant]
     Indication: SLEEP DISORDER THERAPY
     Dates: start: 20080401, end: 20080501
  4. YAZ [Suspect]
     Indication: PAIN
     Route: 048
     Dates: start: 20080101, end: 20080501
  5. CLINDAMYCIN [Concomitant]
     Indication: ACNE
     Dates: start: 20080201, end: 20080701
  6. PROPRANOLOL [Concomitant]
     Indication: PAIN
     Dates: start: 20080501
  7. YAZ [Suspect]
     Indication: ACNE
     Dosage: UNK, QD
     Dates: start: 20080815
  8. TYLENOL W/ CODEINE [Concomitant]
     Dates: start: 20080401
  9. ATIVAN [Concomitant]
     Indication: ANXIETY
  10. YAZ [Suspect]
     Dosage: UNK, QD
     Dates: start: 20080917
  11. YASMIN [Suspect]
     Indication: ACNE
     Route: 048
     Dates: start: 20070724, end: 20080101

REACTIONS (5)
  - DYSPNOEA [None]
  - CHEST DISCOMFORT [None]
  - DEEP VEIN THROMBOSIS [None]
  - PULMONARY EMBOLISM [None]
  - PAIN IN EXTREMITY [None]
